FAERS Safety Report 25004125 (Version 1)
Quarter: 2025Q1

REPORT INFORMATION
  Report Type: Spontaneous
  Country: US (occurrence: None)
  Receive Date: 20250222
  Receipt Date: 20250222
  Transmission Date: 20250409
  Serious: Yes (Hospitalization)
  Sender: FDA-CTU
  Company Number: None

PATIENT
  Age: 75 Year
  Sex: Female

DRUGS (1)
  1. REVLIMID [Suspect]
     Active Substance: LENALIDOMIDE
     Indication: Plasma cell myeloma
     Dosage: FREQUENCY : DAILY;?
     Route: 048
     Dates: start: 20111012, end: 20241022

REACTIONS (3)
  - Asthenia [None]
  - Anaemia [None]
  - Thrombocytopenia [None]

NARRATIVE: CASE EVENT DATE: 20241026
